FAERS Safety Report 9773528 (Version 1)
Quarter: 2013Q4

REPORT INFORMATION
  Report Type: Spontaneous
  Country: CL (occurrence: None)
  Receive Date: 20131217
  Receipt Date: 20131217
  Transmission Date: 20140711
  Serious: Yes (Other)
  Sender: FDA-Public Use
  Company Number: SYM-2013-14055

PATIENT
  Sex: 0

DRUGS (2)
  1. FLUOROURACIL (FLUOROURACIL) (SOLUTION FOR INFUSION) (FLUOROURACIL) [Suspect]
     Indication: GALLBLADDER CANCER
  2. THERAPEUTIC RADIOPHARMACEUTICALS [Suspect]
     Indication: GALLBLADDER CANCER

REACTIONS (1)
  - Hepatic enzyme increased [None]
